FAERS Safety Report 9158683 (Version 5)
Quarter: 2014Q1

REPORT INFORMATION
  Report Type: Spontaneous
  Country: US (occurrence: US)
  Receive Date: 20130312
  Receipt Date: 20140121
  Transmission Date: 20141002
  Serious: Yes (Other)
  Sender: FDA-Public Use
  Company Number: US-PFIZER INC-2013079896

PATIENT
  Age: 63 Year
  Sex: Female
  Weight: 72 kg

DRUGS (6)
  1. PREMARIN [Suspect]
     Indication: HORMONE REPLACEMENT THERAPY
     Dosage: 1.25 MG, 1X/DAY
     Route: 048
  2. ZOLOFT [Suspect]
     Indication: DEPRESSION
     Dosage: 100 MG, 1X/DAY
     Route: 048
  3. CELEBREX [Suspect]
     Indication: SPINAL OSTEOARTHRITIS
     Dosage: 200 MG, 2X/DAY
     Route: 048
  4. LYRICA [Suspect]
     Indication: PAIN
     Dosage: 75 MG, 2X/DAY
     Route: 048
  5. LYRICA [Suspect]
     Indication: FIBROMYALGIA
     Dosage: 75 MG, 3X/DAY
     Route: 048
  6. LOPID [Concomitant]
     Dosage: UNK

REACTIONS (4)
  - Spinal osteoarthritis [Unknown]
  - Foot fracture [Unknown]
  - Restless legs syndrome [Unknown]
  - Pain [Unknown]
